FAERS Safety Report 5887354-4 (Version None)
Quarter: 2008Q3

REPORT INFORMATION
  Report Type: 
  Country: None (occurrence: None)
  Receive Date: 20080917
  Receipt Date: 20080917
  Transmission Date: 20090109
  Serious: Yes (Hospitalization, Other)
  Sender: FDA-Public Use
  Company Number: None

PATIENT
  Sex: Female
  Weight: 78.0187 kg

DRUGS (1)
  1. FLOMAX [Suspect]
     Dosage: ONE
     Dates: start: 20080403

REACTIONS (4)
  - FALL [None]
  - FEELING HOT [None]
  - HYPERHIDROSIS [None]
  - SYNCOPE [None]
